FAERS Safety Report 10997188 (Version 2)
Quarter: 2015Q2

REPORT INFORMATION
  Report Type: Spontaneous
  Country: CL (occurrence: CL)
  Receive Date: 20150408
  Receipt Date: 20150519
  Transmission Date: 20150821
  Serious: Yes (Other)
  Sender: FDA-Public Use
  Company Number: CL-SA-2014SA160787

PATIENT
  Age: 0 Day
  Sex: Female
  Weight: 3.15 kg

DRUGS (1)
  1. LANTUS [Suspect]
     Active Substance: INSULIN GLARGINE
     Indication: GESTATIONAL DIABETES
     Route: 064
     Dates: start: 20141115, end: 20141116

REACTIONS (2)
  - Foetal exposure during pregnancy [Unknown]
  - Aplasia cutis congenita [Not Recovered/Not Resolved]

NARRATIVE: CASE EVENT DATE: 20150126
